FAERS Safety Report 20781169 (Version 1)
Quarter: 2022Q2

REPORT INFORMATION
  Report Type: Spontaneous
  Country: US (occurrence: US)
  Receive Date: 20220504
  Receipt Date: 20220504
  Transmission Date: 20220721
  Serious: No
  Sender: FDA-Public Use
  Company Number: US-JNJFOC-20220501097

PATIENT
  Age: 55 Year
  Sex: Female
  Weight: 117.5 kg

DRUGS (5)
  1. OPSUMIT [Suspect]
     Active Substance: MACITENTAN
     Indication: Product used for unknown indication
     Route: 065
  2. REMODULIN [Suspect]
     Active Substance: TREPROSTINIL
     Indication: Pulmonary arterial hypertension
     Route: 042
     Dates: start: 20210709
  3. REMODULIN [Suspect]
     Active Substance: TREPROSTINIL
     Route: 042
     Dates: start: 20210907
  4. WARFARIN [Suspect]
     Active Substance: WARFARIN
     Indication: Product used for unknown indication
     Route: 065
  5. ADEMPAS [Suspect]
     Active Substance: RIOCIGUAT
     Indication: Product used for unknown indication
     Route: 065

REACTIONS (1)
  - Alopecia [Unknown]
